FAERS Safety Report 4852807-4 (Version None)
Quarter: 2005Q4

REPORT INFORMATION
  Report Type: 
  Country: None (occurrence: None)
  Receive Date: 20051212
  Receipt Date: 20051212
  Transmission Date: 20060501
  Serious: Yes (Hospitalization)
  Sender: FDA-Public Use
  Company Number: None

PATIENT
  Age: 45 Year
  Sex: Female
  Weight: 73.4827 kg

DRUGS (1)
  1. IONAMIN [Suspect]
     Indication: WEIGHT CONTROL
     Dosage: PO
     Route: 048

REACTIONS (5)
  - BRAIN OEDEMA [None]
  - BRAIN STEM HAEMORRHAGE [None]
  - HAEMANGIOMA [None]
  - HYPOAESTHESIA [None]
  - PARAESTHESIA [None]
